FAERS Safety Report 9798812 (Version 2)
Quarter: 2014Q1

REPORT INFORMATION
  Report Type: Spontaneous
  Country: US (occurrence: US)
  Receive Date: 20140106
  Receipt Date: 20140106
  Transmission Date: 20141002
  Serious: Yes (Hospitalization)
  Sender: FDA-Public Use
  Company Number: US-GILEAD-2010-0032227

PATIENT
  Age: 54 Year
  Sex: Female
  Weight: 67.13 kg

DRUGS (36)
  1. LETAIRIS [Suspect]
     Indication: PULMONARY ARTERIAL HYPERTENSION
     Route: 048
     Dates: start: 20070925
  2. ADCIRCA [Concomitant]
  3. REVATIO [Concomitant]
  4. COUMADIN [Concomitant]
  5. LASIX [Concomitant]
  6. HCTZ [Concomitant]
  7. METOLAZONE [Concomitant]
  8. METOPROLOL [Concomitant]
  9. BACTRIM [Concomitant]
  10. DIOVAN [Concomitant]
  11. REGLAN [Concomitant]
  12. NORVASC [Concomitant]
  13. CLARITIN [Concomitant]
  14. PRAZONE [Concomitant]
  15. PLAQUENIL [Concomitant]
  16. CEPHALEXIN [Concomitant]
  17. HYDRALAZINE [Concomitant]
  18. PHOSLO [Concomitant]
  19. FOSAMAX [Concomitant]
  20. POTASSIUM CHLORIDE [Concomitant]
  21. VITAMIN C [Concomitant]
  22. IRON [Concomitant]
  23. CELLCEPT [Concomitant]
  24. ZOCOR [Concomitant]
  25. COZAAR [Concomitant]
  26. ZOLOFT [Concomitant]
  27. PREDNISONE [Concomitant]
  28. VIAGRA [Concomitant]
  29. BENAZEPRIL [Concomitant]
  30. FOLIC ACID [Concomitant]
  31. SIMETHICONE [Concomitant]
  32. DAILY MULTIVITAMIN [Concomitant]
  33. TYLENOL W/CODEINE [Concomitant]
  34. HCTZ/RESERPINE/HYDRAL [Concomitant]
  35. NIFEDIPINE [Concomitant]
  36. PREVACID [Concomitant]

REACTIONS (1)
  - Anaemia [Unknown]
